FAERS Safety Report 4698460-4 (Version None)
Quarter: 2005Q2

REPORT INFORMATION
  Report Type: 
  Country: None (occurrence: None)
  Receive Date: 20050621
  Receipt Date: 20050602
  Transmission Date: 20051028
  Serious: Yes (Hospitalization)
  Sender: FDA-Public Use
  Company Number: JP_050506467

PATIENT
  Age: 79 Year
  Sex: Male
  Weight: 62 kg

DRUGS (8)
  1. PERMAX [Suspect]
     Indication: PARKINSON'S DISEASE
     Dosage: 250 UG/2 DAY
     Dates: start: 20040609, end: 20050420
  2. MADOPAR [Concomitant]
  3. DOPS (DROXIDOPA) [Concomitant]
  4. ARICEPT [Concomitant]
  5. SEROQUEL [Concomitant]
  6. PRAVASTATIN [Concomitant]
  7. AVISHOT (NAFTOPIDIL) [Concomitant]
  8. BUP-4 (PROPIVERINE HYDROCHLORIDE) [Concomitant]

REACTIONS (2)
  - ERYTHROMELALGIA [None]
  - OEDEMA PERIPHERAL [None]
